FAERS Safety Report 9198134 (Version 1)
Quarter: 2013Q1

REPORT INFORMATION
  Report Type: Spontaneous
  Country: AU (occurrence: AU)
  Receive Date: 20130329
  Receipt Date: 20130329
  Transmission Date: 20140127
  Serious: Yes (Life-Threatening, Hospitalization)
  Sender: FDA-Public Use
  Company Number: AU-ELI_LILLY_AND_COMPANY-AU201303009044

PATIENT
  Age: 42 Year
  Sex: Male
  Weight: 83 kg

DRUGS (1)
  1. CYMBALTA [Suspect]
     Indication: DEPRESSION
     Dosage: 120 MG, QD
     Route: 048
     Dates: start: 20100701, end: 20121026

REACTIONS (2)
  - Suicidal ideation [Not Recovered/Not Resolved]
  - Liver injury [Not Recovered/Not Resolved]
